FAERS Safety Report 9578763 (Version 1)
Quarter: 2013Q4

REPORT INFORMATION
  Report Type: Spontaneous
  Country: US (occurrence: US)
  Receive Date: 20131001
  Receipt Date: 20131001
  Transmission Date: 20140711
  Serious: No
  Sender: FDA-Public Use
  Company Number: US-AMGEN-USASP2013014729

PATIENT
  Sex: Female
  Weight: 102.49 kg

DRUGS (6)
  1. ENBREL [Suspect]
     Indication: RHEUMATOID ARTHRITIS
     Dosage: UNK
     Dates: start: 2010, end: 2012
  2. PLAQUENIL                          /00072602/ [Concomitant]
     Dosage: UNK
  3. IMURAN                             /00001501/ [Concomitant]
     Dosage: UNK
  4. CELEXA                             /00582602/ [Concomitant]
     Dosage: UNK
  5. ZANTAC [Concomitant]
     Dosage: UNK
  6. ZYRTEC [Concomitant]
     Dosage: UNK

REACTIONS (1)
  - Drug ineffective [Unknown]
